FAERS Safety Report 25240678 (Version 1)
Quarter: 2025Q2

REPORT INFORMATION
  Report Type: Spontaneous
  Country: FR (occurrence: FR)
  Receive Date: 20250425
  Receipt Date: 20250425
  Transmission Date: 20250717
  Serious: Yes (Disabling)
  Sender: JOHNSON AND JOHNSON
  Company Number: FR-MLMSERVICE-20250411-PI475215-00174-1

PATIENT
  Age: 28 Year
  Sex: Female

DRUGS (3)
  1. HALOPERIDOL [Suspect]
     Active Substance: HALOPERIDOL
     Indication: Psychotic disorder
     Route: 048
  2. HALOPERIDOL [Suspect]
     Active Substance: HALOPERIDOL
     Indication: Symptom recurrence
     Dosage: TWO WEEKS AFTER HALOPERIDOL INTRODUCTION
     Route: 048
  3. HALOPERIDOL [Suspect]
     Active Substance: HALOPERIDOL
     Dosage: VERY GRADUALLY INCREASED TO 4 MG ON 3 WEEKS.
     Route: 048

REACTIONS (2)
  - Yawning [Recovered/Resolved]
  - Paradoxical drug reaction [Recovered/Resolved]
